FAERS Safety Report 13153953 (Version 2)
Quarter: 2017Q1

REPORT INFORMATION
  Report Type: Report from Study
  Country: MX (occurrence: MX)
  Receive Date: 20170126
  Receipt Date: 20170223
  Transmission Date: 20170428
  Serious: Yes (Hospitalization, Other)
  Sender: FDA-Public Use
  Company Number: PHHY2017MX011022

PATIENT
  Age: 37 Year
  Sex: Female
  Weight: 41 kg

DRUGS (3)
  1. AFINITOR [Suspect]
     Active Substance: EVEROLIMUS
     Indication: BREAST CANCER METASTATIC
     Dosage: 10 MG, UNK (TOOK PRESCRIBED 1 TABLET DAILY DURING 7 DAYS AND TO NOT TAKE IT FOR THREE DAYS)
     Route: 048
     Dates: start: 201605, end: 201612
  2. ZOLADEX [Concomitant]
     Active Substance: GOSERELIN ACETATE
     Indication: PRODUCT USED FOR UNKNOWN INDICATION
     Dosage: UNK UNK, Q3MO (EVERY 3 MONTHS)
     Route: 058
     Dates: start: 201512, end: 201611
  3. AROMASIN [Concomitant]
     Active Substance: EXEMESTANE
     Indication: PRODUCT USED FOR UNKNOWN INDICATION
     Dosage: 1 DF, QD
     Route: 048
     Dates: start: 201602

REACTIONS (13)
  - Malignant neoplasm progression [Unknown]
  - Bone marrow tumour cell infiltration [Recovering/Resolving]
  - Pain in extremity [Not Recovered/Not Resolved]
  - Fluid retention [Recovering/Resolving]
  - Nephritis [Recovering/Resolving]
  - Platelet production decreased [Recovering/Resolving]
  - Breast cancer metastatic [Unknown]
  - Platelet count decreased [Recovering/Resolving]
  - Bone lesion [Not Recovered/Not Resolved]
  - Off label use [Recovered/Resolved]
  - Blood creatinine increased [Recovered/Resolved]
  - Renal disorder [Recovering/Resolving]
  - Pyrexia [Recovered/Resolved]

NARRATIVE: CASE EVENT DATE: 201605
